FAERS Safety Report 8575563-5 (Version None)
Quarter: 2012Q2

REPORT INFORMATION
  Report Type: 
  Country: None (occurrence: None)
  Receive Date: 20120423
  Receipt Date: 20091229
  Transmission Date: 20120825
  Serious: Yes (Life-Threatening, Hospitalization)
  Sender: FDA-Public Use
  Company Number: PHEH2009US13922

PATIENT
  Sex: Male

DRUGS (3)
  1. EXJADE [Suspect]
     Indication: CHRONIC LYMPHOCYTIC LEUKAEMIA
     Dosage: 500 MG, QID, ORAL
     Route: 048
     Dates: start: 20090226, end: 20090911
  2. BENDAMUSTINE HYDROCHLORIDE [Suspect]
  3. CAMPATH [Suspect]

REACTIONS (2)
  - THROMBOCYTOPENIA [None]
  - CHRONIC LYMPHOCYTIC LEUKAEMIA [None]
